FAERS Safety Report 4977755-0 (Version None)
Quarter: 2006Q1

REPORT INFORMATION
  Report Type: 
  Country: None (occurrence: None)
  Receive Date: 20060215
  Receipt Date: 20050721
  Transmission Date: 20060701
  Serious: Yes (Hospitalization, Other)
  Sender: FDA-Public Use
  Company Number: MC200500537

PATIENT
  Age: 47 Year
  Sex: Male

DRUGS (4)
  1. ANGIOMAX [Suspect]
     Dosage: BOLUS, IV BOLUS
     Route: 040
     Dates: start: 20050613, end: 20050613
  2. ANGIOMAX [Suspect]
     Dosage: INTRAVENOUS
     Route: 042
     Dates: start: 20050613, end: 20050613
  3. ANGIOMAX [Suspect]
     Dosage: REPEATED BOLUS, DIFFERENT BATCH
     Dates: start: 20050613, end: 20050613
  4. ANGIOMAX [Suspect]
     Dates: start: 20050615, end: 20050615

REACTIONS (3)
  - COAGULATION TIME ABNORMAL [None]
  - CORONARY ARTERY THROMBOSIS [None]
  - MYOCARDIAL INFARCTION [None]
